FAERS Safety Report 22377458 (Version 1)
Quarter: 2023Q2

REPORT INFORMATION
  Report Type: Spontaneous
  Country: CA (occurrence: CA)
  Receive Date: 20230529
  Receipt Date: 20230529
  Transmission Date: 20230722
  Serious: Yes (Other)
  Sender: FDA-Public Use
  Company Number: CA-002147023-NVSC2023CA119684

PATIENT
  Sex: Female
  Weight: 62 kg

DRUGS (2)
  1. METHOTREXATE [Suspect]
     Active Substance: METHOTREXATE
     Indication: Product used for unknown indication
     Dosage: 20 MG, QW
     Route: 058
  2. BENLYSTA [Suspect]
     Active Substance: BELIMUMAB
     Indication: Systemic lupus erythematosus
     Dosage: 600 MG
     Route: 065

REACTIONS (4)
  - Systemic lupus erythematosus [Recovered/Resolved]
  - Illness [Recovered/Resolved]
  - Pharyngitis streptococcal [Recovered/Resolved]
  - Therapeutic response shortened [Recovered/Resolved]
